FAERS Safety Report 14069032 (Version 1)
Quarter: 2017Q4

REPORT INFORMATION
  Report Type: Spontaneous
  Country: US (occurrence: US)
  Receive Date: 20171010
  Receipt Date: 20171010
  Transmission Date: 20180321
  Serious: Yes (Other)
  Sender: FDA-Public Use
  Company Number: US-ABBVIE-17P-163-2040718-00

PATIENT
  Sex: Female

DRUGS (3)
  1. DUOPA [Suspect]
     Active Substance: CARBIDOPA\LEVODOPA
     Dosage: CONTINUOUS DOSE REDUCED
     Route: 050
  2. LEVODOPA/CARBIDOPA [Concomitant]
     Active Substance: CARBIDOPA\LEVODOPA
     Indication: PRODUCT USED FOR UNKNOWN INDICATION
  3. DUOPA [Suspect]
     Active Substance: CARBIDOPA\LEVODOPA
     Indication: PARKINSON^S DISEASE
     Route: 050

REACTIONS (11)
  - Decreased appetite [Unknown]
  - Dyspnoea [Unknown]
  - Parkinson^s disease [Unknown]
  - Poor quality sleep [Unknown]
  - Asthenia [Unknown]
  - Ageusia [Unknown]
  - Dyskinesia [Unknown]
  - Gastric ulcer haemorrhage [Unknown]
  - Weight decreased [Unknown]
  - Freezing phenomenon [Unknown]
  - Extra dose administered [Unknown]
